FAERS Safety Report 10273940 (Version 1)
Quarter: 2014Q1

REPORT INFORMATION
  Report Type: Spontaneous
  Country: US (occurrence: None)
  Receive Date: 20140306
  Receipt Date: 20140306
  Transmission Date: 20141002
  Serious: Yes (Hospitalization)
  Sender: FDA-Public Use
  Company Number: 163-21880-13120947

PATIENT
  Age: 91 Year
  Sex: Male
  Weight: 69.4 kg

DRUGS (4)
  1. REVLIMID [Suspect]
     Indication: MYELODYSPLASTIC SYNDROME
     Dosage: 5 MG, 21 IN 28 D, PO TEMPORARILY INTERRUPTED
     Route: 048
     Dates: start: 20131112
  2. SIMVASTATIN (SIMVASTATIN) [Concomitant]
  3. CLOPIDOGREL (CLOPIDOGREL) [Concomitant]
  4. METOPROLOL (METOPROLOL) [Concomitant]

REACTIONS (3)
  - Anaemia [None]
  - Heart rate increased [None]
  - Blood pressure decreased [None]
